FAERS Safety Report 19274726 (Version 1)
Quarter: 2021Q2

REPORT INFORMATION
  Report Type: Spontaneous
  Country: CN (occurrence: CN)
  Receive Date: 20210519
  Receipt Date: 20210519
  Transmission Date: 20210717
  Serious: Yes (Other)
  Sender: FDA-Public Use
  Company Number: CN-PFIZER INC-2021517622

PATIENT
  Age: 67 Year
  Sex: Male

DRUGS (1)
  1. METHOTREXATE. [Suspect]
     Active Substance: METHOTREXATE
     Indication: CHEMOTHERAPY
     Dosage: 1000 MG, 2X/DAY
     Route: 041
     Dates: start: 20210415, end: 20210416

REACTIONS (5)
  - Mouth ulceration [Recovering/Resolving]
  - White blood cell count decreased [Recovering/Resolving]
  - Febrile neutropenia [Recovering/Resolving]
  - Mouth injury [Recovering/Resolving]
  - Oral disorder [Recovering/Resolving]

NARRATIVE: CASE EVENT DATE: 20210422
